FAERS Safety Report 18091026 (Version 1)
Quarter: 2020Q3

REPORT INFORMATION
  Report Type: Spontaneous
  Country: FR (occurrence: FR)
  Receive Date: 20200730
  Receipt Date: 20200730
  Transmission Date: 20201103
  Serious: Yes (Hospitalization)
  Sender: FDA-Public Use
  Company Number: FR-TEVA-2020-FR-1806420

PATIENT
  Age: 32 Year
  Sex: Male
  Weight: 109 kg

DRUGS (2)
  1. ACIDE CLAVULANIQUE [Suspect]
     Active Substance: CLAVULANIC ACID
     Indication: DERMO-HYPODERMITIS
     Dosage: 125 MG
     Route: 048
     Dates: start: 20200626, end: 20200702
  2. AMOXICILLINE [Suspect]
     Active Substance: AMOXICILLIN
     Indication: DERMO-HYPODERMITIS
     Dosage: 1 GRAM
     Route: 048
     Dates: start: 20200626, end: 20200702

REACTIONS (2)
  - Rash maculo-papular [Recovering/Resolving]
  - Pruritus [Recovering/Resolving]

NARRATIVE: CASE EVENT DATE: 20200702
